FAERS Safety Report 9135290 (Version 1)
Quarter: 2013Q1

REPORT INFORMATION
  Report Type: Spontaneous
  Country: US (occurrence: US)
  Receive Date: 20130304
  Receipt Date: 20130304
  Transmission Date: 20140127
  Serious: No
  Sender: FDA-Public Use
  Company Number: US-ENDO PHARMACEUTICALS INC.-ENDC20110002

PATIENT
  Sex: Male
  Weight: 83.99 kg

DRUGS (2)
  1. ENDOCET [Suspect]
     Indication: RADICULAR PAIN
     Dosage: 10/325 MG
     Route: 048
     Dates: start: 2008, end: 201011
  2. ENDOCET [Suspect]
     Dosage: 60/1950 MG
     Route: 048
     Dates: start: 201011

REACTIONS (3)
  - Arthralgia [Not Recovered/Not Resolved]
  - Decreased activity [Not Recovered/Not Resolved]
  - Hangover [Not Recovered/Not Resolved]
